FAERS Safety Report 9596861 (Version 2)
Quarter: 2013Q4

REPORT INFORMATION
  Report Type: Spontaneous
  Country: US (occurrence: US)
  Receive Date: 20131004
  Receipt Date: 20131014
  Transmission Date: 20140711
  Serious: No
  Sender: FDA-Public Use
  Company Number: US-PFIZER INC-2013281694

PATIENT
  Sex: Female

DRUGS (15)
  1. MOTRIN IB [Suspect]
     Dosage: UNK
  2. VITAMIN B6 [Concomitant]
     Indication: MUSCLE SPASMS
     Dosage: UNK
  3. LASIX [Concomitant]
     Dosage: 40 MG, UNK
  4. TIAZAC [Concomitant]
     Dosage: 180 MG, ONCE A DAY
  5. GEMFIBROZIL [Concomitant]
     Indication: BLOOD CHOLESTEROL
     Dosage: 600 MG, TWICE A DAY
  6. NEXIUM [Concomitant]
     Indication: ULCER
     Dosage: 40 MG, ONCE A DAY
  7. LEVOTHYROXINE [Concomitant]
     Indication: THYROID THERAPY
     Dosage: 100 UG, ONCE A DAY
  8. PREMARIN [Concomitant]
     Indication: HORMONE REPLACEMENT THERAPY
     Dosage: 1.25 MG, UNK
  9. PRAVASTATIN [Concomitant]
     Indication: BLOOD CHOLESTEROL
     Dosage: 40 MG, ONCE A DAY
  10. CELEBREX [Concomitant]
     Indication: ARTHRITIS
     Dosage: 200 MG, UNK
  11. FLEXERIL [Concomitant]
     Indication: NERVOUSNESS
     Dosage: 10 MG, UNK
  12. CENTRUM [Concomitant]
     Dosage: UNK
  13. OSCAL PLUS D [Concomitant]
     Indication: MINERAL SUPPLEMENTATION
     Dosage: 500 MG, ONCE A DAY
  14. ECOTRIN [Concomitant]
     Indication: ANTICOAGULANT THERAPY
     Dosage: 325 MG, ONCE A DAY
  15. MUCINEX [Concomitant]
     Indication: HYPERSENSITIVITY
     Dosage: 600 MG, ONCE A DAY

REACTIONS (1)
  - Drug hypersensitivity [Unknown]
